FAERS Safety Report 4968121-2 (Version None)
Quarter: 2006Q2

REPORT INFORMATION
  Report Type: 
  Country: None (occurrence: None)
  Receive Date: 20060405
  Receipt Date: 20060328
  Transmission Date: 20061013
  Serious: Yes (Other)
  Sender: FDA-Public Use
  Company Number: 006#1#2006-00018

PATIENT
  Age: 67 Year
  Sex: Male

DRUGS (1)
  1. EDEX [Suspect]
     Indication: ERECTILE DYSFUNCTION
     Dosage: INTRACAVERNOUS
     Route: 017
     Dates: start: 20050601

REACTIONS (1)
  - AMNESIA [None]
